FAERS Safety Report 17030034 (Version 1)
Quarter: 2019Q4

REPORT INFORMATION
  Report Type: Not Available
  Country: US (occurrence: US)
  Receive Date: 20191114
  Receipt Date: 20191114
  Transmission Date: 20200122
  Serious: No
  Sender: FDA-Public Use
  Company Number: US-NEUROCRINE BIOSCIENCES INC.-2019NBI03318

PATIENT
  Age: 66 Year
  Sex: Male

DRUGS (3)
  1. INGREZZA [Suspect]
     Active Substance: VALBENAZINE
     Route: 048
     Dates: start: 20190727, end: 20191007
  2. INGREZZA [Suspect]
     Active Substance: VALBENAZINE
     Indication: TARDIVE DYSKINESIA
     Route: 048
     Dates: start: 20190719, end: 20190726
  3. REMERON [Suspect]
     Active Substance: MIRTAZAPINE

REACTIONS (3)
  - Bradykinesia [Unknown]
  - Slow speech [Unknown]
  - Drug interaction [Unknown]

NARRATIVE: CASE EVENT DATE: 20190819
